FAERS Safety Report 8885211 (Version 1)
Quarter: 2012Q4

REPORT INFORMATION
  Report Type: 
  Country: US (occurrence: US)
  Receive Date: 20121102
  Receipt Date: 20121102
  Transmission Date: 20130627
  Serious: No
  Sender: FDA-Public Use
  Company Number: US-PFIZER INC-2012266963

PATIENT
  Sex: Female
  Weight: 58.96 kg

DRUGS (3)
  1. TETRACYCLINE HCL [Suspect]
     Indication: INFECTION
     Dosage: UNK
  2. ACETYLSALICYLIC ACID [Concomitant]
     Indication: GENERAL BODY PAIN
     Dosage: 325 mg, as needed
  3. IBUPROFEN [Concomitant]
     Indication: GENERAL BODY PAIN
     Dosage: 600 mg, as needed

REACTIONS (1)
  - Hypersensitivity [Recovered/Resolved]
